FAERS Safety Report 15777073 (Version 1)
Quarter: 2018Q4

REPORT INFORMATION
  Report Type: Spontaneous
  Country: JP (occurrence: JP)
  Receive Date: 20181231
  Receipt Date: 20181231
  Transmission Date: 20190205
  Serious: Yes (Death, Life-Threatening, Other)
  Sender: FDA-Public Use
  Company Number: JP-009507513-1808JPN002912J

PATIENT
  Age: 68 Year
  Sex: Female
  Weight: 46 kg

DRUGS (5)
  1. TAKECAB [Concomitant]
     Active Substance: VONOPRAZAN FUMURATE
     Indication: DUODENAL ULCER
     Dosage: 1 DOSAGE FORM, QD
     Route: 048
     Dates: start: 20180426, end: 20180904
  2. YOKUKANSAN [Concomitant]
     Active Substance: HERBALS
     Dosage: 1 DOSAGE FORM, TID
     Route: 048
     Dates: start: 20180529, end: 20180828
  3. TRAMCET [Concomitant]
     Active Substance: ACETAMINOPHEN\TRAMADOL
     Indication: MUSCULOSKELETAL PAIN
     Dosage: 1 DOSAGE FORM, TID
     Route: 048
     Dates: start: 20180506, end: 20180904
  4. REBAMIPIDE [Concomitant]
     Active Substance: REBAMIPIDE
     Indication: DUODENAL ULCER
     Dosage: 1 DOSAGE FORM, TID
     Route: 048
     Dates: start: 20180426, end: 20180827
  5. KEYTRUDA [Suspect]
     Active Substance: PEMBROLIZUMAB
     Indication: NON-SMALL CELL LUNG CANCER
     Dosage: 200 MILLIGRAM, Q3W
     Route: 041
     Dates: start: 20180621, end: 20180712

REACTIONS (1)
  - Pneumonitis [Fatal]

NARRATIVE: CASE EVENT DATE: 20180802
